FAERS Safety Report 12946134 (Version 2)
Quarter: 2016Q4

REPORT INFORMATION
  Report Type: Spontaneous
  Country: US (occurrence: US)
  Receive Date: 20161116
  Receipt Date: 20161117
  Transmission Date: 20170207
  Serious: No
  Sender: FDA-Public Use
  Company Number: US-BEH-2016075258

PATIENT
  Sex: Female
  Weight: 87.98 kg

DRUGS (6)
  1. DIPHENHYDRAMINE. [Concomitant]
     Active Substance: DIPHENHYDRAMINE
  2. AMOXICILLIN. [Concomitant]
     Active Substance: AMOXICILLIN
  3. ACETAMINOPHEN. [Concomitant]
     Active Substance: ACETAMINOPHEN
  4. EPIPEN [Concomitant]
     Active Substance: EPINEPHRINE
  5. LMX                                /00033401/ [Concomitant]
  6. HIZENTRA [Suspect]
     Active Substance: HUMAN IMMUNOGLOBULIN G
     Indication: IMMUNODEFICIENCY COMMON VARIABLE
     Dosage: 10 G, QW
     Route: 058
     Dates: start: 20150716

REACTIONS (5)
  - Diarrhoea [Unknown]
  - Migraine [Unknown]
  - Chills [Unknown]
  - Nausea [Unknown]
  - Vomiting [Unknown]
